FAERS Safety Report 18072400 (Version 1)
Quarter: 2020Q3

REPORT INFORMATION
  Report Type: Other
  Country: HR (occurrence: HR)
  Receive Date: 20200727
  Receipt Date: 20200727
  Transmission Date: 20201103
  Serious: Yes (Hospitalization, Other)
  Sender: FDA-Public Use
  Company Number: HR-GE HEALTHCARE LIFE SCIENCES-2020CSU003186

PATIENT

DRUGS (2)
  1. CLARISCAN [Suspect]
     Active Substance: GADOTERATE MEGLUMINE
     Indication: MAGNETIC RESONANCE IMAGING
     Dosage: 0,5 NMOL/L 10 ML
     Route: 042
     Dates: start: 20200618, end: 20200618
  2. CLARISCAN [Suspect]
     Active Substance: GADOTERATE MEGLUMINE
     Indication: PRODUCT USED FOR UNKNOWN INDICATION

REACTIONS (5)
  - Urticaria [Recovering/Resolving]
  - Syncope [Recovering/Resolving]
  - Hyperhidrosis [Recovering/Resolving]
  - Breath sounds abnormal [Recovering/Resolving]
  - Tremor [Recovering/Resolving]

NARRATIVE: CASE EVENT DATE: 20200618
